FAERS Safety Report 19995758 (Version 1)
Quarter: 2021Q4

REPORT INFORMATION
  Report Type: Spontaneous
  Country: US (occurrence: US)
  Receive Date: 20211026
  Receipt Date: 20211026
  Transmission Date: 20220304
  Serious: Yes (Other)
  Sender: FDA-Public Use
  Company Number: US-BEH-2021137145

PATIENT
  Age: 36 Year
  Sex: Female

DRUGS (1)
  1. HIZENTRA [Suspect]
     Active Substance: HUMAN IMMUNOGLOBULIN G
     Indication: Immunodeficiency
     Dosage: 12 GRAM, QW
     Route: 058
     Dates: start: 202006

REACTIONS (5)
  - COVID-19 [Unknown]
  - Pyrexia [Unknown]
  - Chills [Unknown]
  - Hyperhidrosis [Unknown]
  - Fatigue [Unknown]

NARRATIVE: CASE EVENT DATE: 20211013
